FAERS Safety Report 7660837-2 (Version None)
Quarter: 2011Q3

REPORT INFORMATION
  Report Type: 
  Country: None (occurrence: None)
  Receive Date: 20110805
  Receipt Date: 20101109
  Transmission Date: 20111222
  Serious: No
  Sender: FDA-Public Use
  Company Number: US-ABBOTT-10P-163-0684238-00

PATIENT
  Sex: Male

DRUGS (2)
  1. NIASPAN [Suspect]
     Dosage: 500MG AT BEDTIME
     Route: 048
  2. NIASPAN [Suspect]
     Indication: BLOOD TRIGLYCERIDES INCREASED
     Dosage: 1000MG AT BEDTIME
     Route: 048

REACTIONS (1)
  - PARAESTHESIA [None]
